FAERS Safety Report 13598929 (Version 2)
Quarter: 2017Q3

REPORT INFORMATION
  Report Type: Report from Study
  Country: US (occurrence: US)
  Receive Date: 20170531
  Receipt Date: 20170724
  Transmission Date: 20171127
  Serious: Yes (Hospitalization)
  Sender: FDA-Public Use
  Company Number: US-ASTRAZENECA-2017SE55183

PATIENT
  Age: 69 Year
  Sex: Female
  Weight: 107.8 kg

DRUGS (28)
  1. VITAMIN D3 [Concomitant]
     Active Substance: CHOLECALCIFEROL
     Dosage: 1000 UNITS DAILY
     Route: 065
  2. GLIMEPIRIDE. [Concomitant]
     Active Substance: GLIMEPIRIDE
     Route: 065
  3. SYNTHROID [Concomitant]
     Active Substance: LEVOTHYROXINE SODIUM
     Route: 065
  4. MAGNESIUM OXIDE. [Concomitant]
     Active Substance: MAGNESIUM OXIDE
     Route: 065
  5. METFORMIN [Concomitant]
     Active Substance: METFORMIN HYDROCHLORIDE
     Route: 065
  6. COMPAZINE [Concomitant]
     Active Substance: PROCHLORPERAZINE MALEATE
     Indication: NAUSEA
     Dosage: 10.0MG AS REQUIRED
     Route: 065
  7. PRAVASTATIN. [Concomitant]
     Active Substance: PRAVASTATIN
     Route: 048
  8. HYDRALAZINE [Concomitant]
     Active Substance: HYDRALAZINE HYDROCHLORIDE
     Dosage: 1 OO MG UD
     Route: 065
  9. INSULIN ASPART [Concomitant]
     Active Substance: INSULIN ASPART
     Dosage: 32 UNITS ETC. PLUS SLIDING SCALE
     Route: 065
  10. MULTIVITAMIN [Concomitant]
     Active Substance: VITAMINS
     Dosage: DAILY
     Route: 065
  11. MEDI0680 [Suspect]
     Active Substance: INVESTIGATIONAL PRODUCT
     Indication: METASTATIC RENAL CELL CARCINOMA
     Route: 042
     Dates: start: 20170130
  12. CABOMETYX [Concomitant]
     Active Substance: CABOZANTINIB S-MALATE
     Indication: RENAL CANCER
     Route: 048
     Dates: start: 20170317
  13. CALCIUM CITRATE [Concomitant]
     Active Substance: CALCIUM CITRATE
     Route: 065
  14. CYANOCOBALAMIN. [Concomitant]
     Active Substance: CYANOCOBALAMIN
     Route: 065
  15. HYDROCHLOROTHIAZIDE. [Concomitant]
     Active Substance: HYDROCHLOROTHIAZIDE
     Route: 065
  16. MEDI4736 [Suspect]
     Active Substance: DURVALUMAB
     Indication: METASTATIC RENAL CELL CARCINOMA
     Route: 042
     Dates: start: 20170101
  17. TYLENOL [Concomitant]
     Active Substance: ACETAMINOPHEN
     Indication: PAIN
     Dosage: P.R.N.
     Route: 065
  18. VITAMIN C [Concomitant]
     Active Substance: ASCORBIC ACID
     Route: 065
  19. METOPROLOL TARTRATE. [Concomitant]
     Active Substance: METOPROLOL TARTRATE
     Route: 065
  20. OMEPRAZOLE. [Concomitant]
     Active Substance: OMEPRAZOLE
     Route: 065
  21. SPIRONOLACTONE. [Concomitant]
     Active Substance: SPIRONOLACTONE
     Route: 065
  22. MEDI4736 [Suspect]
     Active Substance: DURVALUMAB
     Indication: METASTATIC RENAL CELL CARCINOMA
     Route: 042
     Dates: start: 20170130
  23. ASPIRIN. [Concomitant]
     Active Substance: ASPIRIN
     Route: 065
  24. FENTANYL. [Concomitant]
     Active Substance: FENTANYL
     Dosage: 12 MG PER HOUR Q. 48 HOURS
     Route: 065
  25. MEDI0680 [Suspect]
     Active Substance: INVESTIGATIONAL PRODUCT
     Indication: METASTATIC RENAL CELL CARCINOMA
     Route: 042
     Dates: start: 20170101
  26. LOSARTAN. [Concomitant]
     Active Substance: LOSARTAN
     Route: 065
  27. CELEBREX [Concomitant]
     Active Substance: CELECOXIB
     Route: 048
     Dates: start: 20170327, end: 20170503
  28. INSULIN GLARGINE [Concomitant]
     Active Substance: INSULIN GLARGINE
     Dosage: 86 UNITS AT BEDTIME
     Route: 065

REACTIONS (2)
  - Myalgia [Recovered/Resolved]
  - Arthralgia [Recovered/Resolved]

NARRATIVE: CASE EVENT DATE: 20170503
